FAERS Safety Report 7708846-9 (Version None)
Quarter: 2011Q3

REPORT INFORMATION
  Report Type: 
  Country: None (occurrence: None)
  Receive Date: 20110819
  Receipt Date: 20110808
  Transmission Date: 20111222
  Serious: Yes (Hospitalization)
  Sender: FDA-Public Use
  Company Number: 2011CP000129

PATIENT
  Age: 34 Year
  Sex: Female

DRUGS (1)
  1. ACETAMINOPHEN [Suspect]
     Indication: PAIN
     Dosage: 100 ML; IV
     Route: 042
     Dates: start: 20110721

REACTIONS (3)
  - THROMBOPHLEBITIS [None]
  - EXTRAVASATION [None]
  - OEDEMA PERIPHERAL [None]
